FAERS Safety Report 16947634 (Version 1)
Quarter: 2019Q4

REPORT INFORMATION
  Report Type: Spontaneous
  Country: CA (occurrence: CA)
  Receive Date: 20191022
  Receipt Date: 20191022
  Transmission Date: 20200122
  Serious: Yes (Hospitalization)
  Sender: FDA-Public Use
  Company Number: CA-BIOMARINAP-CA-2019-125603

PATIENT

DRUGS (3)
  1. AVAMYS [Concomitant]
     Active Substance: FLUTICASONE FUROATE
     Indication: HYPERSENSITIVITY
     Dosage: UNK
     Route: 045
     Dates: start: 2019
  2. AERIUS [EBASTINE] [Concomitant]
     Active Substance: EBASTINE
     Indication: PREMEDICATION
     Dosage: 2.5 MILLIGRAM, SINGLE
     Route: 048
  3. NAGLAZYME [Suspect]
     Active Substance: GALSULFASE
     Indication: MUCOPOLYSACCHARIDOSIS VI
     Dosage: 25 MILLIGRAM, QW
     Route: 042
     Dates: start: 20120830

REACTIONS (4)
  - Skin disorder [Not Recovered/Not Resolved]
  - Skin discolouration [Not Recovered/Not Resolved]
  - Haematoma [Recovered/Resolved]
  - Catheter site bruise [Not Recovered/Not Resolved]

NARRATIVE: CASE EVENT DATE: 20190708
